FAERS Safety Report 8906855 (Version 2)
Quarter: 2013Q1

REPORT INFORMATION
  Report Type: Spontaneous
  Country: US (occurrence: US)
  Receive Date: 20121114
  Receipt Date: 20130227
  Transmission Date: 20140127
  Serious: Yes (Hospitalization)
  Sender: FDA-Public Use
  Company Number: US-BAYER-2012-116722

PATIENT
  Age: 44 Year
  Sex: Female
  Weight: 90.7 kg

DRUGS (7)
  1. YAZ [Suspect]
     Indication: CONTRACEPTION
     Dosage: UNK
     Dates: start: 2007, end: 201011
  2. YASMIN [Suspect]
     Indication: MENSTRUAL DISORDER
     Dosage: UNK
     Dates: start: 2007, end: 201011
  3. OCELLA [Suspect]
     Indication: MENSTRUAL DISORDER
     Dosage: UNK
     Dates: start: 2007, end: 201011
  4. ZARAH [Suspect]
  5. LEVOTHYROXINE [Concomitant]
     Indication: HYPOTHYROIDISM
     Dosage: 0.15 MG (PER PFS) 0.125 MG (PER PR)
     Dates: start: 1993
  6. MULTIVITAMIN [Concomitant]
     Indication: REHABILITATION THERAPY
     Dosage: 1 DAILY
     Dates: start: 1988
  7. ACYCLOVIR [ACICLOVIR SODIUM] [Concomitant]
     Dosage: 400 MG, UNK
     Dates: start: 20100730

REACTIONS (6)
  - Cholelithiasis [None]
  - Cholecystitis chronic [None]
  - Emotional distress [None]
  - Fear [None]
  - Injury [None]
  - Abdominal pain [None]
